FAERS Safety Report 12314276 (Version 2)
Quarter: 2016Q3

REPORT INFORMATION
  Report Type: Report from Study
  Country: FR (occurrence: FR)
  Receive Date: 20160428
  Receipt Date: 20160712
  Transmission Date: 20161109
  Serious: Yes (Other)
  Sender: FDA-Public Use
  Company Number: FR-PFIZER INC-2015275458

PATIENT
  Age: 62 Year
  Sex: Male
  Weight: 133 kg

DRUGS (2)
  1. CLINDAMYCIN PHOSPHATE. [Suspect]
     Active Substance: CLINDAMYCIN PHOSPHATE
     Indication: STAPHYLOCOCCAL INFECTION
     Dosage: UNK
  2. PEFLOXACIN [Concomitant]
     Active Substance: PEFLOXACIN
     Indication: STAPHYLOCOCCAL INFECTION
     Dosage: UNK

REACTIONS (2)
  - Drug ineffective [Unknown]
  - Antibiotic level below therapeutic [Unknown]
